FAERS Safety Report 19053147 (Version 1)
Quarter: 2021Q1

REPORT INFORMATION
  Report Type: Spontaneous
  Country: IT (occurrence: IT)
  Receive Date: 20210324
  Receipt Date: 20210324
  Transmission Date: 20210420
  Serious: Yes (Hospitalization)
  Sender: FDA-Public Use
  Company Number: IT-TAKEDA-2021TUS018861

PATIENT
  Age: 80 Year
  Sex: Female

DRUGS (7)
  1. ADENURIC [Suspect]
     Active Substance: FEBUXOSTAT
     Indication: HYPERURICAEMIA
     Dosage: 80 MILLIGRAM, BID
     Route: 048
     Dates: start: 20200816, end: 20200818
  2. BEZALIP [Concomitant]
     Active Substance: BEZAFIBRATE
     Dosage: UNK
     Route: 065
  3. CARDICOR [Concomitant]
     Active Substance: BISOPROLOL
     Dosage: UNK
     Route: 065
  4. VAGILEN [Suspect]
     Active Substance: METRONIDAZOLE
     Indication: CROHN^S DISEASE
     Dosage: 250 MILLIGRAM, QD
     Route: 048
     Dates: start: 20200730, end: 20200807
  5. LIXIANA [Concomitant]
     Active Substance: EDOXABAN TOSYLATE
     Dosage: UNK
     Route: 065
  6. ENTOCIR [Suspect]
     Active Substance: BUDESONIDE
     Indication: CROHN^S DISEASE
     Dosage: 9 MILLIGRAM, QD
     Route: 048
     Dates: start: 20200730, end: 20200807
  7. BIVIS [Concomitant]
     Active Substance: AMLODIPINE BESYLATE\OLMESARTAN MEDOXOMIL
     Dosage: UNK
     Route: 065

REACTIONS (4)
  - Oedema peripheral [Recovered/Resolved]
  - Erythema [Recovered/Resolved]
  - Pruritus [Recovered/Resolved]
  - Vasculitis [Recovered/Resolved]

NARRATIVE: CASE EVENT DATE: 20200823
